FAERS Safety Report 6511934-6 (Version None)
Quarter: 2009Q4

REPORT INFORMATION
  Report Type: 
  Country: None (occurrence: None)
  Receive Date: 20091222
  Receipt Date: 20090616
  Transmission Date: 20100525
  Serious: No
  Sender: FDA-Public Use
  Company Number: US-ASTRAZENECA-2009UW15353

PATIENT
  Age: 85 Year
  Sex: Female

DRUGS (11)
  1. CRESTOR [Suspect]
     Route: 048
  2. PERCOCET [Suspect]
  3. OMEPRAZOLE [Concomitant]
     Indication: GASTROOESOPHAGEAL REFLUX DISEASE
     Route: 048
  4. SYNTHROID [Concomitant]
     Indication: HYPOTHYROIDISM
  5. MYSOLINE [Concomitant]
     Indication: TREMOR
  6. ALTACE [Concomitant]
     Indication: HYPERTENSION
  7. COREG [Concomitant]
     Indication: HYPERTENSION
  8. ASPIRIN [Concomitant]
  9. POTASSIUM [Concomitant]
  10. SUPPLEMENTS [Concomitant]
  11. VITAMINS [Concomitant]

REACTIONS (2)
  - ABDOMINAL PAIN [None]
  - WRONG TECHNIQUE IN DRUG USAGE PROCESS [None]
